FAERS Safety Report 9131215 (Version 3)
Quarter: 2013Q3

REPORT INFORMATION
  Report Type: Spontaneous
  Country: NZ (occurrence: NZ)
  Receive Date: 20130301
  Receipt Date: 20130903
  Transmission Date: 20140515
  Serious: Yes (Hospitalization)
  Sender: FDA-Public Use
  Company Number: NZ-SANOFI-AVENTIS-2013SA017699

PATIENT
  Sex: Female

DRUGS (3)
  1. LANTUS SOLOSTAR [Suspect]
     Indication: PRODUCT USED FOR UNKNOWN INDICATION
     Route: 055
     Dates: start: 20130223, end: 20130223
  2. SOLOSTAR [Concomitant]
     Indication: DEVICE THERAPY
     Dates: start: 20130223, end: 20130223
  3. PENICILLIN NOS [Concomitant]
     Indication: PHARYNGITIS STREPTOCOCCAL

REACTIONS (3)
  - Malaise [Recovered/Resolved]
  - Accidental exposure to product [Unknown]
  - Syncope [Recovered/Resolved]
